FAERS Safety Report 10513419 (Version 4)
Quarter: 2015Q1

REPORT INFORMATION
  Report Type: Report from Study
  Country: GB (occurrence: GB)
  Receive Date: 20141013
  Receipt Date: 20150211
  Transmission Date: 20150720
  Serious: Yes (Hospitalization)
  Sender: FDA-Public Use
  Company Number: GB-JNJFOC-20141000727

PATIENT
  Age: 58 Year
  Sex: Male

DRUGS (14)
  1. STELARA [Suspect]
     Active Substance: USTEKINUMAB
     Indication: PSORIASIS
     Route: 058
     Dates: start: 20140508, end: 20140925
  2. ISOSORBIDE MONONITRATE. [Concomitant]
     Active Substance: ISOSORBIDE MONONITRATE
     Route: 065
     Dates: start: 20140922
  3. BISOPROLOL [Suspect]
     Active Substance: BISOPROLOL
     Indication: CARDIAC DISORDER
     Route: 065
  4. ISOSORBIDE MONONITRATE. [Concomitant]
     Active Substance: ISOSORBIDE MONONITRATE
     Dosage: HALF TABLET IN THE MORNING
     Route: 065
     Dates: start: 20141122
  5. STELARA [Suspect]
     Active Substance: USTEKINUMAB
     Indication: PSORIASIS
     Route: 058
     Dates: start: 20100929
  6. RAMIPRIL. [Concomitant]
     Active Substance: RAMIPRIL
     Dosage: 28 CAPSULE
     Route: 065
     Dates: start: 20101012
  7. NAFTIDROFURYL [Concomitant]
     Active Substance: NAFRONYL
     Dosage: 2 CASULES THREE TIMES IN A DAY
     Route: 065
     Dates: start: 20131209
  8. ISOSORBIDE MONONITRATE. [Concomitant]
     Active Substance: ISOSORBIDE MONONITRATE
     Route: 065
     Dates: start: 20130528
  9. BISOPROLOL [Suspect]
     Active Substance: BISOPROLOL
     Indication: CARDIAC DISORDER
     Route: 065
  10. ASPIRIN. [Concomitant]
     Active Substance: ASPIRIN
     Route: 065
     Dates: start: 20130509
  11. CLOPIDOGREL [Concomitant]
     Active Substance: CLOPIDOGREL BISULFATE
     Route: 065
     Dates: start: 20131129
  12. CARVEDILOL. [Concomitant]
     Active Substance: CARVEDILOL
     Route: 065
     Dates: start: 20140922
  13. METFORMIN [Concomitant]
     Active Substance: METFORMIN HYDROCHLORIDE
     Route: 065
     Dates: start: 20141218
  14. FLUVASTATIN [Concomitant]
     Active Substance: FLUVASTATIN SODIUM
     Dosage: 1 CAPSULE AT NIGHT
     Route: 065
     Dates: start: 20140325

REACTIONS (10)
  - Infection [Recovered/Resolved]
  - Urinary retention [Unknown]
  - Liver function test abnormal [Unknown]
  - Glucose tolerance impaired [Unknown]
  - Urinary tract disorder [Recovered/Resolved]
  - Psoriasis [Recovering/Resolving]
  - Vitamin B12 deficiency [Unknown]
  - Cardiac disorder [Unknown]
  - Nephrolithiasis [Unknown]
  - Depressed mood [Unknown]

NARRATIVE: CASE EVENT DATE: 20110526
